FAERS Safety Report 21445473 (Version 1)
Quarter: 2022Q4

REPORT INFORMATION
  Report Type: Spontaneous
  Country: US (occurrence: None)
  Receive Date: 20221011
  Receipt Date: 20221011
  Transmission Date: 20230113
  Serious: Yes (Hospitalization)
  Sender: FDA-Public Use
  Company Number: None

PATIENT
  Age: 44 Year
  Sex: Male
  Weight: 101 kg

DRUGS (1)
  1. TRAZODONE HYDROCHLORIDE [Suspect]
     Active Substance: TRAZODONE HYDROCHLORIDE

REACTIONS (6)
  - Suicidal ideation [None]
  - Intentional overdose [None]
  - Vomiting [None]
  - Physical assault [None]
  - Treatment noncompliance [None]
  - Self-medication [None]

NARRATIVE: CASE EVENT DATE: 20220928
